FAERS Safety Report 8271176-3 (Version None)
Quarter: 2012Q2

REPORT INFORMATION
  Report Type: 
  Country: None (occurrence: None)
  Receive Date: 20120406
  Receipt Date: 20120329
  Transmission Date: 20120825
  Serious: Yes (Other)
  Sender: FDA-Public Use
  Company Number: 1245742

PATIENT
  Age: 76 Year
  Sex: Female

DRUGS (7)
  1. PREDNISOLONE [Suspect]
     Indication: RHEUMATOID ARTHRITIS
     Dosage: 5 MG MILLIGRAM(S) ORAL
     Route: 048
  2. (PAMIDRONIC ACID) [Suspect]
     Indication: OSTEOPOROSIS
     Dosage: 30 MG EVERY THREE MONTHS, INTRAVENOUS (NOT OTHERWISE SPECIFIED)
     Route: 042
  3. METHOTREXATE [Suspect]
     Indication: RHEUMATOID ARTHRITIS
     Dosage: 15 MG ONCE A WEEK, INTRAVENOUS (NOT OTHERWISE SPECIFIED)
     Route: 042
  4. CALCIUM CARBONATE [Concomitant]
  5. RABEPRAZOLE SODIUM [Suspect]
     Indication: PRODUCT USED FOR UNKNOWN INDICATION
     Dosage: 20 MG MILLIGRAM(S), ORAL
     Route: 048
  6. VITAMIN D [Concomitant]
  7. (FOLIC ACID) [Concomitant]

REACTIONS (12)
  - FEMUR FRACTURE [None]
  - FEMORAL NECK FRACTURE [None]
  - ARTHRALGIA [None]
  - OSTEOSCLEROSIS [None]
  - JOINT SWELLING [None]
  - LIGAMENT SPRAIN [None]
  - TIBIA FRACTURE [None]
  - STRESS [None]
  - BONE MARROW OEDEMA [None]
  - STRESS FRACTURE [None]
  - CELLULITIS [None]
  - FALL [None]
